FAERS Safety Report 13937691 (Version 3)
Quarter: 2017Q4

REPORT INFORMATION
  Report Type: Report from Study
  Country: US (occurrence: US)
  Receive Date: 20170905
  Receipt Date: 20171027
  Transmission Date: 20180320
  Serious: Yes (Hospitalization, Other)
  Sender: FDA-Public Use
  Company Number: US-GILEAD-2017-0291328

PATIENT
  Age: 81 Year
  Sex: Female

DRUGS (7)
  1. IDELALISIB [Interacting]
     Active Substance: IDELALISIB
     Dosage: 100 MG, BID
     Route: 048
     Dates: start: 20160223, end: 20160308
  2. IDELALISIB [Interacting]
     Active Substance: IDELALISIB
     Indication: CHRONIC LYMPHOCYTIC LEUKAEMIA
     Dosage: 100 MG, BID
     Route: 048
     Dates: start: 20150518, end: 20150901
  3. LOSARTAN. [Concomitant]
     Active Substance: LOSARTAN
  4. PLAVIX [Concomitant]
     Active Substance: CLOPIDOGREL BISULFATE
  5. IDELALISIB [Interacting]
     Active Substance: IDELALISIB
     Dosage: 100 MG, BID
     Route: 048
     Dates: start: 20160315
  6. BRILINTA [Interacting]
     Active Substance: TICAGRELOR
     Indication: MYOCARDIAL INFARCTION
     Dosage: UNK
     Route: 065
  7. IDELALISIB [Suspect]
     Active Substance: IDELALISIB
     Indication: NON-HODGKIN^S LYMPHOMA
     Dosage: UNK
     Route: 048
     Dates: start: 20140825

REACTIONS (7)
  - Cardiac failure congestive [Unknown]
  - Cardiac failure [Unknown]
  - Drug interaction [Not Recovered/Not Resolved]
  - Coronary arterial stent insertion [Unknown]
  - Ejection fraction abnormal [Not Recovered/Not Resolved]
  - Myocardial infarction [Unknown]
  - Aortic stenosis [Unknown]

NARRATIVE: CASE EVENT DATE: 20170822
